FAERS Safety Report 5742547-1 (Version None)
Quarter: 2008Q2

REPORT INFORMATION
  Report Type: 
  Country: None (occurrence: None)
  Receive Date: 20080515
  Receipt Date: 20080515
  Transmission Date: 20081010
  Serious: Yes (Other)
  Sender: FDA-Public Use
  Company Number: None

PATIENT
  Age: 85 Year
  Sex: Female
  Weight: 69.4003 kg

DRUGS (2)
  1. DIGITEK BERTEK - MYLAN [Suspect]
     Indication: ATRIAL FIBRILLATION
     Dosage: 1 A DAY
     Dates: start: 20080329, end: 20080502
  2. DIGITEK BERTEK - MYLAN [Suspect]
     Indication: CARDIAC VALVE DISEASE
     Dosage: 1 A DAY
     Dates: start: 20080329, end: 20080502

REACTIONS (3)
  - DISORIENTATION [None]
  - FALL [None]
  - JOINT INJURY [None]
